FAERS Safety Report 15566840 (Version 5)
Quarter: 2020Q3

REPORT INFORMATION
  Report Type: Spontaneous
  Country: ES (occurrence: ES)
  Receive Date: 20181030
  Receipt Date: 20181119
  Transmission Date: 20201105
  Serious: Yes (Hospitalization, Other)
  Sender: FDA-Public Use
  Company Number: IND-ES-009507513-1810ESP010999

PATIENT
  Age: 78 Year
  Sex: Female

DRUGS (2)
  1. EXXIV 60 MG COMPRIMIDOS RECUBIERTOS CON PEL?CULA [Suspect]
     Active Substance: ETORICOXIB
     Indication: OSTEOARTHRITIS
     Dosage: 60 MILLIGRAM, PER DAY
     Route: 048
     Dates: start: 201506, end: 201508
  2. TURMERIC [Interacting]
     Active Substance: HERBALS\TURMERIC
     Dosage: UNK
     Route: 048
     Dates: end: 201602

REACTIONS (3)
  - Hepatic failure [Recovered/Resolved with Sequelae]
  - Hepatotoxicity [Recovered/Resolved with Sequelae]
  - Drug interaction [Recovered/Resolved with Sequelae]

NARRATIVE: CASE EVENT DATE: 2015
